FAERS Safety Report 7089417-7 (Version None)
Quarter: 2010Q4

REPORT INFORMATION
  Report Type: 
  Country: None (occurrence: None)
  Receive Date: 20101108
  Receipt Date: 20100903
  Transmission Date: 20110411
  Serious: Yes (Death, Hospitalization)
  Sender: FDA-Public Use
  Company Number: GXKR2007IT01134

PATIENT
  Age: 45 Year
  Sex: Female

DRUGS (26)
  1. DIAZEPAM [Suspect]
     Indication: AGITATION
     Dates: start: 20021009
  2. HALOPERIDOL (NGX) [Suspect]
     Indication: AGITATION
     Dates: start: 20021009
  3. ITRACONAZOLE [Suspect]
     Dosage: 100 MG
     Dates: start: 20021009
  4. FUROSEMIDE (NGX) [Suspect]
     Route: 042
     Dates: start: 20021027
  5. OMEPRAZOLE [Suspect]
     Dosage: 20 MG, QD
     Dates: start: 20021103
  6. PANTOPRAZOLE [Suspect]
     Dates: start: 20021009
  7. CORTISONE ACETATE [Suspect]
     Dosage: 25 MG, BID
     Dates: start: 20021103
  8. CANRENOIC ACID [Suspect]
     Route: 042
     Dates: start: 20021027
  9. FLUDROCORTISONE [Suspect]
     Dates: end: 20021024
  10. CALCIUM GLUCONATE [Concomitant]
     Indication: HYPOCALCAEMIA
  11. POTASSIUM CHLORIDE [Concomitant]
     Indication: HYPOKALAEMIA
  12. AMOXICILLIN SODIUM W/CLAVULANATE POTASSIUM [Concomitant]
     Dates: end: 20021019
  13. LEVOFLOXACIN [Concomitant]
     Dates: end: 20021019
  14. RAMIFIED CHAIN AMINO ACIDS [Concomitant]
     Dates: start: 20021027
  15. PIPERACILLIN [Concomitant]
  16. HYDROCORTISONE HEMISUCCINATE [Concomitant]
     Dosage: 100 MG X 2
     Route: 042
  17. RANITIDINE [Concomitant]
     Route: 042
  18. RIFAMYCIN [Concomitant]
  19. GENTAMICIN [Concomitant]
     Route: 061
  20. POVIDONE IODINE [Concomitant]
  21. BETAMETHASONE [Concomitant]
     Dosage: 4 MG IV X 2
     Route: 042
  22. CHLORPHENAMINE [Concomitant]
     Route: 042
  23. GLUCOSE [Concomitant]
  24. MGCACL [Concomitant]
  25. ALBUMIN (HUMAN) [Concomitant]
  26. INSULIN [Concomitant]

REACTIONS (6)
  - BACTERIAL TEST POSITIVE [None]
  - BLISTER [None]
  - MOUTH ULCERATION [None]
  - RASH [None]
  - SEPTIC SHOCK [None]
  - TOXIC EPIDERMAL NECROLYSIS [None]
